FAERS Safety Report 6302922-3 (Version None)
Quarter: 2009Q3

REPORT INFORMATION
  Report Type: 
  Country: None (occurrence: None)
  Receive Date: 20090810
  Receipt Date: 20090803
  Transmission Date: 20100115
  Serious: Yes (Hospitalization, Congenital Anomaly)
  Sender: FDA-Public Use
  Company Number: A0699864A

PATIENT
  Sex: Female
  Weight: 2.6 kg

DRUGS (3)
  1. PAXIL [Suspect]
     Indication: POSTPARTUM DEPRESSION
     Dosage: 10MG TWICE PER DAY
     Dates: start: 19960101, end: 19990101
  2. VITAMIN AND MINERAL PRENATAL SUPPLEMENT W/ FOLIC ACID CAP [Concomitant]
  3. BRETHINE [Concomitant]

REACTIONS (5)
  - DRUG EXPOSURE DURING PREGNANCY [None]
  - DYSPNOEA [None]
  - JAUNDICE [None]
  - MULTIPLE CONGENITAL ABNORMALITIES [None]
  - SMALL FOR DATES BABY [None]
